FAERS Safety Report 24171826 (Version 1)
Quarter: 2024Q3

REPORT INFORMATION
  Report Type: Spontaneous
  Country: US (occurrence: US)
  Receive Date: 20240805
  Receipt Date: 20240805
  Transmission Date: 20241016
  Serious: Yes (Hospitalization)
  Sender: ENDO
  Company Number: US-ENDO PHARMACEUTICALS INC-2024-001927

PATIENT
  Age: 0 Year
  Sex: Male
  Weight: 9.36 kg

DRUGS (6)
  1. BOSENTAN [Suspect]
     Active Substance: BOSENTAN
     Indication: Pulmonary hypertension
     Dosage: 8.6 MILLIGRAM, BID (EVERYDAY)
  2. SILDENAFIL [Suspect]
     Active Substance: SILDENAFIL
     Indication: Pulmonary hypertension
     Dosage: 0.5 MILLIGRAM, TID (8 HOURS, EVERYDAY)
  3. ALBUTEROL [Concomitant]
     Active Substance: ALBUTEROL
     Indication: Bronchopulmonary dysplasia
     Dosage: 1 DOSAGE FORM, DAILY (1 PUFF EVERYDAY)
     Route: 065
  4. DIURIL [CHLOROTHIAZIDE SODIUM] [Concomitant]
     Indication: Bronchopulmonary dysplasia
     Dosage: 1.8 MILLILITER, BID (EVERYDAY)
  5. LASIX [Concomitant]
     Active Substance: FUROSEMIDE
     Indication: Bronchopulmonary dysplasia
     Dosage: 1.7 MILLILITER, TID (8 HOURS, EVERYDAY)
  6. FLOVENT [Concomitant]
     Active Substance: FLUTICASONE PROPIONATE
     Indication: Bronchopulmonary dysplasia
     Dosage: 2 DOSAGE FORM, BID (2 PUFF EVERYDAY)

REACTIONS (2)
  - Hypoxia [Recovered/Resolved]
  - Off label use [Not Recovered/Not Resolved]

NARRATIVE: CASE EVENT DATE: 20240601
